FAERS Safety Report 8346180-7 (Version None)
Quarter: 2012Q2

REPORT INFORMATION
  Report Type: 
  Country: None (occurrence: None)
  Receive Date: 20120509
  Receipt Date: 20120427
  Transmission Date: 20120825
  Serious: Yes (Hospitalization)
  Sender: FDA-Public Use
  Company Number: DE-JNJFOC-20120408327

PATIENT
  Age: 15 Year
  Sex: Male
  Weight: 60 kg

DRUGS (11)
  1. THALIDOMIDE [Concomitant]
     Indication: CROHN'S DISEASE
     Route: 065
     Dates: start: 20120217
  2. CIPROFLOXACIN [Concomitant]
     Indication: CROHN'S DISEASE
     Route: 065
     Dates: start: 20120327
  3. REMICADE [Suspect]
     Indication: COLITIS ULCERATIVE
     Route: 042
     Dates: start: 20120216
  4. PANTOPRAZOLE [Concomitant]
     Indication: CROHN'S DISEASE
     Route: 065
     Dates: start: 20120327
  5. DIMETINDEN MALEATE [Concomitant]
     Indication: PREMEDICATION
     Route: 065
     Dates: start: 20120415
  6. REMICADE [Suspect]
     Route: 042
     Dates: start: 20120415, end: 20120415
  7. REMICADE [Suspect]
     Route: 042
     Dates: start: 20120415, end: 20120415
  8. PREDNISOLONE SODIUM SUCCINATE INJ [Concomitant]
     Indication: PREMEDICATION
     Route: 065
     Dates: start: 20120415
  9. REMICADE [Suspect]
     Indication: CROHN'S DISEASE
     Route: 042
     Dates: start: 20120216
  10. METRONIDAZOLE [Concomitant]
     Route: 065
     Dates: start: 20120401
  11. PREDNISOLONE [Concomitant]
     Indication: CROHN'S DISEASE
     Route: 065
     Dates: start: 20120426

REACTIONS (3)
  - INFUSION RELATED REACTION [None]
  - URTICARIA [None]
  - DYSPNOEA [None]
